FAERS Safety Report 16273515 (Version 1)
Quarter: 2019Q2

REPORT INFORMATION
  Report Type: Report from Study
  Country: US (occurrence: US)
  Receive Date: 20190506
  Receipt Date: 20190506
  Transmission Date: 20190711
  Serious: No
  Sender: FDA-Public Use
  Company Number: PHEH2019US019221

PATIENT
  Sex: Female

DRUGS (1)
  1. TREPROSTINIL. [Suspect]
     Active Substance: TREPROSTINIL
     Indication: PULMONARY ARTERIAL HYPERTENSION
     Dosage: 1 DF (144 NG/KG/MIN), CONTINUOUSLY
     Route: 042
     Dates: start: 20190410

REACTIONS (3)
  - Fatigue [Unknown]
  - Vertigo [Unknown]
  - Vomiting [Unknown]
